FAERS Safety Report 10265788 (Version 1)
Quarter: 2014Q2

REPORT INFORMATION
  Report Type: Spontaneous
  Country: US (occurrence: US)
  Receive Date: 20140627
  Receipt Date: 20140627
  Transmission Date: 20141212
  Serious: Yes (Hospitalization)
  Sender: FDA-Public Use
  Company Number: US-GLAXOSMITHKLINE-A1078059A

PATIENT
  Age: 19 Year
  Sex: Male

DRUGS (6)
  1. ADVAIR HFA [Suspect]
     Indication: ASTHMA
     Route: 065
     Dates: start: 2012, end: 201406
  2. ADVAIR HFA [Suspect]
     Indication: PRODUCT USED FOR UNKNOWN INDICATION
     Route: 065
     Dates: start: 201406
  3. SINGULAIR [Concomitant]
  4. PREDNISONE [Concomitant]
  5. VENTOLIN HFA [Concomitant]
  6. ALBUTEROL NEBULIZER [Concomitant]

REACTIONS (9)
  - Investigation [Unknown]
  - Intensive care [Unknown]
  - Wheezing [Unknown]
  - Pulmonary function test decreased [Unknown]
  - Dyspnoea [Unknown]
  - Oxygen saturation decreased [Unknown]
  - Drug ineffective [Unknown]
  - Drug dose omission [Unknown]
  - Drug administration error [Unknown]
